FAERS Safety Report 10265746 (Version 2)
Quarter: 2014Q3

REPORT INFORMATION
  Report Type: Spontaneous
  Country: US (occurrence: US)
  Receive Date: 20140627
  Receipt Date: 20140807
  Transmission Date: 20150326
  Serious: Yes (Hospitalization, Other)
  Sender: FDA-Public Use
  Company Number: US-BRISTOL-MYERS SQUIBB COMPANY-21044060

PATIENT
  Age: 74 Year
  Sex: Female
  Weight: 58.05 kg

DRUGS (1)
  1. ELIQUIS [Suspect]
     Active Substance: APIXABAN
     Indication: CEREBROVASCULAR ACCIDENT PROPHYLAXIS
     Dosage: DOSE INCR.TO 5 MG TWICE/DAY, CONTINUED ELIQUIS UNTIL 06MAR2014.?INTERUPTED ON 17DEC13
     Dates: start: 20131114

REACTIONS (2)
  - Haemorrhage [Recovered/Resolved]
  - Cardiac ablation [Unknown]

NARRATIVE: CASE EVENT DATE: 20131219
